FAERS Safety Report 11536386 (Version 1)
Quarter: 2015Q3

REPORT INFORMATION
  Report Type: Spontaneous
  Country: None (occurrence: None)
  Receive Date: 20150921
  Receipt Date: 20150921
  Transmission Date: 20151125
  Serious: Yes (Other)
  Sender: FDA-Public Use
  Company Number: None

PATIENT
  Age: 52 Year
  Sex: Female
  Weight: 52.62 kg

DRUGS (7)
  1. OXYCODONE 7.5 ALVOGEN [Suspect]
     Active Substance: OXYCODONE
     Indication: BACK PAIN
     Route: 048
  2. ATIVAN [Concomitant]
     Active Substance: LORAZEPAM
  3. VITAMIN E [Concomitant]
     Active Substance: .ALPHA.-TOCOPHEROL
  4. AMBIEN [Concomitant]
     Active Substance: ZOLPIDEM TARTRATE
  5. MELOXICAM. [Concomitant]
     Active Substance: MELOXICAM
  6. TIZANIDINE. [Concomitant]
     Active Substance: TIZANIDINE
  7. MULTI-VITAMIN [Concomitant]
     Active Substance: .ALPHA.-TOCOPHEROL ACETATE, DL-\ASCORBIC ACID\CYANOCOBALAMIN\FLUORIDE ION\FOLIC ACID\NIACIN\PYRIDOXINE\RIBOFLAVIN\THIAMINE\VITAMIN A\VITAMIN D

REACTIONS (6)
  - Chest pain [None]
  - Throat tightness [None]
  - Headache [None]
  - Facial pain [None]
  - Palpitations [None]
  - Abdominal pain upper [None]

NARRATIVE: CASE EVENT DATE: 20150917
